FAERS Safety Report 8391499-7 (Version None)
Quarter: 2012Q2

REPORT INFORMATION
  Report Type: 
  Country: None (occurrence: None)
  Receive Date: 20120529
  Receipt Date: 20120521
  Transmission Date: 20120825
  Serious: Yes (Hospitalization)
  Sender: FDA-Public Use
  Company Number: CH-GILEAD-2012-0055380

PATIENT
  Age: 45 Year
  Sex: Male

DRUGS (4)
  1. EFAVIRENZ [Suspect]
     Indication: HIV INFECTION
     Dosage: 1800 MG, QD
     Dates: start: 20101001
  2. TRUVADA [Suspect]
     Indication: HIV INFECTION
     Dosage: 1 DF, QD
     Route: 048
     Dates: start: 20100501, end: 20110201
  3. EFAVIRENZ [Suspect]
     Dosage: 600 MG, QD
     Route: 048
     Dates: start: 20100501, end: 20100601
  4. EFAVIRENZ [Suspect]
     Dosage: 1200 MG, QD
     Route: 048
     Dates: start: 20100601, end: 20101001

REACTIONS (3)
  - RENAL FAILURE [None]
  - ACUTE RESPIRATORY DISTRESS SYNDROME [None]
  - PNEUMONIA [None]
